FAERS Safety Report 7375607-2 (Version None)
Quarter: 2011Q1

REPORT INFORMATION
  Report Type: 
  Country: None (occurrence: None)
  Receive Date: 20110325
  Receipt Date: 20100921
  Transmission Date: 20110831
  Serious: No
  Sender: FDA-Public Use
  Company Number: US-BAYER-2011-025506

PATIENT
  Sex: Female
  Weight: 130 kg

DRUGS (4)
  1. ATENOLOL [Concomitant]
  2. ALEVE [Suspect]
     Indication: ARTHRITIS
  3. VERAPAMIL [Concomitant]
  4. LISINOPRIL [Concomitant]

REACTIONS (1)
  - NO ADVERSE EVENT [None]
